FAERS Safety Report 5004796-X (Version None)
Quarter: 2006Q2

REPORT INFORMATION
  Report Type: 
  Country: None (occurrence: None)
  Receive Date: 20060517
  Receipt Date: 20050414
  Transmission Date: 20061013
  Serious: Yes (Hospitalization, Other)
  Sender: FDA-Public Use
  Company Number: US-MERCK-0504USA02800

PATIENT
  Age: 37 Year
  Sex: Female
  Weight: 141 kg

DRUGS (3)
  1. VIOXX [Suspect]
     Route: 048
     Dates: start: 19991101, end: 20030101
  2. PROVENTIL [Concomitant]
     Route: 065
  3. FLOVENT [Concomitant]
     Route: 065

REACTIONS (11)
  - ASTHMA [None]
  - BRONCHITIS [None]
  - CARDIAC FAILURE CONGESTIVE [None]
  - GASTRIC DISORDER [None]
  - GASTROOESOPHAGEAL REFLUX DISEASE [None]
  - HYPERTENSION [None]
  - HYPERTENSIVE HEART DISEASE [None]
  - IRON DEFICIENCY ANAEMIA [None]
  - PNEUMONIA [None]
  - POLYTRAUMATISM [None]
  - SLEEP APNOEA SYNDROME [None]
